FAERS Safety Report 15010286 (Version 1)
Quarter: 2018Q2

REPORT INFORMATION
  Report Type: Spontaneous
  Country: US (occurrence: US)
  Receive Date: 20180528
  Receipt Date: 20180528
  Transmission Date: 20180711
  Serious: Yes (Other)
  Sender: FDA-Public Use
  Company Number: None

PATIENT
  Age: 72 Year
  Sex: Male
  Weight: 67.5 kg

DRUGS (6)
  1. EZETIMIBE TABLETS, USP - 10 MG (30 TABLETS) [Suspect]
     Active Substance: EZETIMIBE
     Indication: BLOOD CHOLESTEROL INCREASED
     Dosage: ?          QUANTITY:1 TABLET(S);?
     Route: 048
     Dates: start: 20171208, end: 20180518
  2. VITAMIN D [Concomitant]
     Active Substance: CHOLECALCIFEROL
  3. POTASSIUM [Concomitant]
     Active Substance: POTASSIUM
  4. ONE-A-DAY VITAMINS [Concomitant]
  5. CALCIUM [Concomitant]
     Active Substance: CALCIUM
  6. ASPIRIN 81 MG [Concomitant]
     Active Substance: ASPIRIN

REACTIONS (1)
  - Pruritus [None]

NARRATIVE: CASE EVENT DATE: 20180518
